FAERS Safety Report 7951123-1 (Version None)
Quarter: 2011Q4

REPORT INFORMATION
  Report Type: 
  Country: None (occurrence: None)
  Receive Date: 20111201
  Receipt Date: 20111128
  Transmission Date: 20120403
  Serious: Yes (Other)
  Sender: FDA-Public Use
  Company Number: US-AMGEN-USASP2011062952

PATIENT
  Age: 27 Year
  Sex: Female

DRUGS (2)
  1. NPLATE [Suspect]
     Indication: THROMBOCYTOPENIA
     Dosage: 4 MUG/KG, QWK
     Route: 058
     Dates: start: 20111027
  2. PLATELETS [Concomitant]
     Indication: THROMBOCYTOPENIA

REACTIONS (3)
  - PULMONARY ALVEOLAR HAEMORRHAGE [None]
  - DRUG INEFFECTIVE [None]
  - LUNG INFILTRATION [None]
